FAERS Safety Report 10351592 (Version 1)
Quarter: 2014Q3

REPORT INFORMATION
  Report Type: Spontaneous
  Country: US (occurrence: US)
  Receive Date: 20140730
  Receipt Date: 20140730
  Transmission Date: 20150326
  Serious: No
  Sender: FDA-Public Use
  Company Number: US-BAYER-2014-101727

PATIENT
  Age: 29 Year
  Sex: Male

DRUGS (7)
  1. CIPROFLOXACIN. [Suspect]
     Active Substance: CIPROFLOXACIN
     Indication: SKIN INFECTION
  2. CLARITHROMYCIN. [Concomitant]
     Active Substance: CLARITHROMYCIN
     Indication: MYCOBACTERIUM FORTUITUM INFECTION
     Dosage: UNK
     Route: 048
  3. TRIMETOPRIM + SULFAMETOXAZOL [Concomitant]
     Indication: SKIN INFECTION
  4. CIPROFLOXACIN. [Suspect]
     Active Substance: CIPROFLOXACIN
     Indication: MYCOBACTERIUM FORTUITUM INFECTION
     Dosage: 250 MG, BID
     Route: 048
  5. CLARITHROMYCIN. [Concomitant]
     Active Substance: CLARITHROMYCIN
     Indication: SKIN INFECTION
  6. CEPHALEXIN. [Concomitant]
     Active Substance: CEPHALEXIN
     Dosage: 500 MG, QID
     Route: 048
  7. TRIMETOPRIM + SULFAMETOXAZOL [Concomitant]
     Indication: MYCOBACTERIUM FORTUITUM INFECTION
     Dosage: 160 MG/800 MG TWICE DAILY
     Route: 048

REACTIONS (1)
  - Off label use [None]
